FAERS Safety Report 14653267 (Version 3)
Quarter: 2018Q2

REPORT INFORMATION
  Report Type: Spontaneous
  Country: BR (occurrence: BR)
  Receive Date: 20180319
  Receipt Date: 20180507
  Transmission Date: 20180711
  Serious: Yes (Hospitalization, Other)
  Sender: FDA-Public Use
  Company Number: BR-B.I. PHARMACEUTICALS,INC./RIDGEFIELD-2018-BI-014970

PATIENT
  Sex: Male
  Weight: 65 kg

DRUGS (4)
  1. PREDNISONA [Concomitant]
     Active Substance: PREDNISONE
     Indication: PRODUCT USED FOR UNKNOWN INDICATION
     Route: 065
  2. ATENOLOL. [Concomitant]
     Active Substance: ATENOLOL
     Indication: INFARCTION
     Route: 048
  3. PRADAXA [Suspect]
     Active Substance: DABIGATRAN ETEXILATE MESYLATE
     Indication: ATRIAL FIBRILLATION
     Route: 048
     Dates: start: 201802
  4. ATORVASTATINA [Concomitant]
     Active Substance: ATORVASTATIN
     Indication: INFARCTION
     Route: 048

REACTIONS (6)
  - Erythema [Not Recovered/Not Resolved]
  - Stent placement [Unknown]
  - Angioplasty [Unknown]
  - Limb injury [Unknown]
  - Skin discolouration [Not Recovered/Not Resolved]
  - Procoagulant therapy [Unknown]
